FAERS Safety Report 24698075 (Version 2)
Quarter: 2025Q4

REPORT INFORMATION
  Report Type: Spontaneous
  Country: US (occurrence: US)
  Receive Date: 20241204
  Receipt Date: 20251109
  Transmission Date: 20260119
  Serious: No
  Sender: SANOFI AVENTIS
  Company Number: US-SA-2024SA355868

PATIENT
  Sex: Female

DRUGS (3)
  1. DUPIXENT [Suspect]
     Active Substance: DUPILUMAB
     Indication: Dermatitis atopic
     Dosage: 300 MG, QOW
     Route: 058
     Dates: start: 202410
  2. OFEV [Concomitant]
     Active Substance: NINTEDANIB
  3. PIRFENIDONE [Concomitant]
     Active Substance: PIRFENIDONE

REACTIONS (1)
  - Diarrhoea [Unknown]
